FAERS Safety Report 9344795 (Version 1)
Quarter: 2013Q2

REPORT INFORMATION
  Report Type: Spontaneous
  Country: CA (occurrence: CA)
  Receive Date: 20130612
  Receipt Date: 20130612
  Transmission Date: 20140414
  Serious: Yes (Hospitalization)
  Sender: FDA-Public Use
  Company Number: CA-GLAXOSMITHKLINE-A1025769A

PATIENT
  Sex: Female

DRUGS (5)
  1. VOTRIENT [Suspect]
     Indication: SARCOMA
     Dosage: 800MG PER DAY
     Route: 048
     Dates: start: 20130306, end: 20130530
  2. PRISTIQ [Concomitant]
  3. SYNTHROID [Concomitant]
  4. METFORMIN [Concomitant]
  5. EC ASA [Concomitant]

REACTIONS (3)
  - Malignant neoplasm progression [Not Recovered/Not Resolved]
  - Electrolyte imbalance [Not Recovered/Not Resolved]
  - Drug ineffective [Not Recovered/Not Resolved]
